FAERS Safety Report 9490847 (Version 1)
Quarter: 2013Q3

REPORT INFORMATION
  Report Type: Spontaneous
  Country: US (occurrence: None)
  Receive Date: 20130826
  Receipt Date: 20130826
  Transmission Date: 20140515
  Serious: Yes (Death)
  Sender: FDA-Public Use
  Company Number: 1856436

PATIENT
  Sex: 0

DRUGS (1)
  1. FENTANYL CITRATE [Suspect]
     Route: 040

REACTIONS (2)
  - Metabolic acidosis [None]
  - Cardiac arrest [None]
